FAERS Safety Report 6296448-3 (Version None)
Quarter: 2009Q3

REPORT INFORMATION
  Report Type: 
  Country: None (occurrence: None)
  Receive Date: 20090724
  Receipt Date: 20090303
  Transmission Date: 20100115
  Serious: Yes (Hospitalization)
  Sender: FDA-Public Use
  Company Number: 2009BI003970

PATIENT
  Age: 48 Year
  Sex: Female

DRUGS (10)
  1. TYSABRI [Suspect]
     Indication: MULTIPLE SCLEROSIS
     Dosage: 300 MG;QM;IV
     Route: 042
     Dates: start: 20080630
  2. NEURONTIN [Concomitant]
  3. BACLOFEN [Concomitant]
  4. PROZAC [Concomitant]
  5. TOPAMAX [Concomitant]
  6. TRAZODONE HCL [Concomitant]
  7. PROVIGIL [Concomitant]
  8. ATIVAN [Concomitant]
  9. VITAMIN D [Concomitant]
  10. . [Concomitant]

REACTIONS (2)
  - MULTIPLE SCLEROSIS RELAPSE [None]
  - WHITE BLOOD CELL COUNT INCREASED [None]
